FAERS Safety Report 23976578 (Version 1)
Quarter: 2024Q2

REPORT INFORMATION
  Report Type: Spontaneous
  Country: IN (occurrence: IN)
  Receive Date: 20240614
  Receipt Date: 20240614
  Transmission Date: 20240716
  Serious: Yes (Death, Life-Threatening, Hospitalization, Other)
  Sender: FDA-Public Use
  Company Number: IN-SUN PHARMACEUTICAL INDUSTRIES LTD-2024R1-451081

PATIENT
  Age: 24 Year
  Sex: Female

DRUGS (2)
  1. ALLOPURINOL [Suspect]
     Active Substance: ALLOPURINOL
     Indication: Product used for unknown indication
     Dosage: UNK
     Route: 065
  2. DEXAMETHASONE [Suspect]
     Active Substance: DEXAMETHASONE
     Indication: Thrombocytopenia
     Dosage: UNK
     Route: 065

REACTIONS (7)
  - Condition aggravated [Fatal]
  - Respiratory acidosis [Fatal]
  - Haemodynamic instability [Fatal]
  - Anaemia [Fatal]
  - Drug ineffective [Fatal]
  - Granulocytopenia [Fatal]
  - Shock haemorrhagic [Fatal]
